FAERS Safety Report 15323021 (Version 2)
Quarter: 2019Q4

REPORT INFORMATION
  Report Type: Report from Study
  Country: US (occurrence: US)
  Receive Date: 20180827
  Receipt Date: 20191105
  Transmission Date: 20200122
  Serious: Yes (Death)
  Sender: FDA-Public Use
  Company Number: US-PFIZER INC-2018340247

PATIENT

DRUGS (4)
  1. ABRAXANE [Suspect]
     Active Substance: PACLITAXEL
     Indication: NEOPLASM
     Dosage: 125 MG/M2, CYCLIC (DAYS 1, 8, AND 15 OF EACH 28-DAY CYCLE)
     Route: 042
  2. FILGRASTIM [Concomitant]
     Active Substance: FILGRASTIM
     Indication: COLONY STIMULATING FACTOR THERAPY
     Dosage: UNK
  3. GEMCITABINE HYDROCHLORIDE. [Suspect]
     Active Substance: GEMCITABINE HYDROCHLORIDE
     Indication: NEOPLASM
     Dosage: 1000 MG/M2, CYCLIC (DAYS 1, 8, AND 15 OF EACH 28-DAY CYCLE)
     Route: 042
  4. ITACITINIB [Suspect]
     Active Substance: ITACITINIB
     Indication: NEOPLASM
     Dosage: 300 MG, 1X/DAY (CYCLES)
     Route: 048

REACTIONS (1)
  - Pneumonia [Fatal]
